FAERS Safety Report 4889743-3 (Version None)
Quarter: 2006Q1

REPORT INFORMATION
  Report Type: 
  Country: None (occurrence: None)
  Receive Date: 20060124
  Receipt Date: 20050317
  Transmission Date: 20060701
  Serious: Yes (Hospitalization, Other)
  Sender: FDA-Public Use
  Company Number: US-MERCK-0503USA03421

PATIENT
  Age: 39 Year
  Sex: Female

DRUGS (1)
  1. VIOXX [Suspect]
     Route: 048

REACTIONS (9)
  - ADVERSE EVENT [None]
  - BACK PAIN [None]
  - CORONARY ARTERY DISEASE [None]
  - HYPERLIPIDAEMIA [None]
  - IMPINGEMENT SYNDROME [None]
  - INTERVERTEBRAL DISC PROTRUSION [None]
  - LUMBAR SPINAL STENOSIS [None]
  - SPINAL DISORDER [None]
  - VERTEBRAL INJURY [None]
